FAERS Safety Report 5508623-3 (Version None)
Quarter: 2007Q4

REPORT INFORMATION
  Report Type: 
  Country: None (occurrence: None)
  Receive Date: 20071107
  Receipt Date: 20071031
  Transmission Date: 20080405
  Serious: Yes (Disabling)
  Sender: FDA-Public Use
  Company Number: JP-BRISTOL-MYERS SQUIBB COMPANY-13946603

PATIENT
  Age: 27 Year
  Sex: Male

DRUGS (8)
  1. BREVIBLOC [Suspect]
     Indication: ENDOTRACHEAL INTUBATION
     Route: 042
     Dates: start: 20040423, end: 20040423
  2. SEVOFLURANE [Suspect]
     Indication: MAINTENANCE OF ANAESTHESIA
     Route: 025
     Dates: start: 20040423, end: 20040423
  3. DIPRIVAN [Suspect]
     Indication: ENDOTRACHEAL INTUBATION
     Route: 042
     Dates: start: 20040423, end: 20040423
  4. MUSCULAX [Suspect]
     Route: 042
     Dates: start: 20040423, end: 20040423
  5. XYLOCAINE W/ EPINEPHRINE [Suspect]
     Route: 042
     Dates: start: 20040423, end: 20040423
  6. OXYGEN [Concomitant]
     Indication: MAINTENANCE OF ANAESTHESIA
     Route: 025
     Dates: start: 20040423, end: 20040423
  7. NITROUS OXIDE [Concomitant]
     Indication: MAINTENANCE OF ANAESTHESIA
     Route: 025
     Dates: start: 20040423, end: 20040423
  8. VEEN-F [Concomitant]
     Indication: FLUID REPLACEMENT
     Route: 041
     Dates: start: 20040423, end: 20040423

REACTIONS (3)
  - BRADYCARDIA [None]
  - CRANIAL NERVE DISORDER [None]
  - SHOCK [None]
